FAERS Safety Report 5471668-6 (Version None)
Quarter: 2007Q3

REPORT INFORMATION
  Report Type: 
  Country: None (occurrence: None)
  Receive Date: 20070928
  Receipt Date: 20070508
  Transmission Date: 20080115
  Serious: No
  Sender: FDA-Public Use
  Company Number: US-BRISTOL-MYERS SQUIBB COMPANY-13720040

PATIENT
  Age: 44 Year
  Sex: Female
  Weight: 98 kg

DRUGS (1)
  1. DEFINITY [Suspect]
     Indication: ULTRASOUND SCAN
     Route: 042
     Dates: start: 20070320

REACTIONS (3)
  - ARTHRALGIA [None]
  - MUSCLE SPASMS [None]
  - MUSCULOSKELETAL PAIN [None]
